FAERS Safety Report 17782482 (Version 3)
Quarter: 2020Q2

REPORT INFORMATION
  Report Type: Spontaneous
  Country: GR (occurrence: GR)
  Receive Date: 20200514
  Receipt Date: 20200518
  Transmission Date: 20200714
  Serious: Yes (Death, Life-Threatening, Hospitalization, Other)
  Sender: FDA-Public Use
  Company Number: GR-PFIZER INC-2020189871

PATIENT
  Age: 73 Year
  Sex: Male

DRUGS (1)
  1. METHYLPREDNISOLONE. [Suspect]
     Active Substance: METHYLPREDNISOLONE
     Dosage: 32 MG, DAILY

REACTIONS (15)
  - Pneumonia cryptococcal [Fatal]
  - Fungal pharyngitis [Unknown]
  - Cryptococcosis [Fatal]
  - Coagulopathy [Fatal]
  - Ascites [Recovering/Resolving]
  - Herpes simplex [Fatal]
  - Haemodynamic instability [Fatal]
  - Haemorrhage [Fatal]
  - Cardiopulmonary failure [Fatal]
  - Anuria [Fatal]
  - Oral fungal infection [Unknown]
  - Disseminated cryptococcosis [Fatal]
  - Laryngitis fungal [Unknown]
  - Meningitis cryptococcal [Fatal]
  - Multiple organ dysfunction syndrome [Fatal]
